FAERS Safety Report 4407265-0 (Version None)
Quarter: 2004Q3

REPORT INFORMATION
  Report Type: 
  Country: None (occurrence: None)
  Receive Date: 20040721
  Receipt Date: 20040706
  Transmission Date: 20050211
  Serious: Yes (Hospitalization)
  Sender: FDA-Public Use
  Company Number: 174645

PATIENT
  Age: 42 Year
  Sex: Female
  Weight: 72.5755 kg

DRUGS (3)
  1. AVONEX [Suspect]
     Indication: MULTIPLE SCLEROSIS
     Dosage: 30 MCG QW IM
     Route: 030
     Dates: start: 20000101
  2. IRON (NOS) [Concomitant]
  3. VITAMIN NOS [Concomitant]

REACTIONS (2)
  - HYPERTENSION [None]
  - UTERINE LEIOMYOMA [None]
